FAERS Safety Report 5139258-2 (Version None)
Quarter: 2006Q4

REPORT INFORMATION
  Report Type: 
  Country: None (occurrence: None)
  Receive Date: 20061024
  Receipt Date: 20061016
  Transmission Date: 20070319
  Serious: Yes (Death)
  Sender: FDA-Public Use
  Company Number: 231235

PATIENT
  Age: 88 Year
  Sex: Female

DRUGS (25)
  1. RANIBIZUMAB(RANIBIZUMAB) PWDR + SOLVENT, INJECTION SOLN [Suspect]
     Indication: MACULAR DEGENERATION
     Dosage: UNK, UNK, INTRAVITREAL
     Dates: start: 20060307, end: 20060511
  2. FOSAMAX [Concomitant]
  3. TRICOR [Concomitant]
  4. PLAVIX [Concomitant]
  5. CELEBREX [Concomitant]
  6. SPIRONOLACTONE [Concomitant]
  7. FUROSEMIDE [Concomitant]
  8. COREG [Concomitant]
  9. LIPITOR [Concomitant]
  10. MILK OF MAGNESIA (MILK OF MAGNESIA) [Concomitant]
  11. METAMUCIL (PSYLLIUM HUSK) [Concomitant]
  12. CENTRUM SILVER (MINERALS NOS, MULTIVITAMINS NOS) [Concomitant]
  13. CALTRATE 600 + D(CALCIUM NOS, CHOLECALCIFEROL) [Concomitant]
  14. DULCOLAX [Concomitant]
  15. OCUVITE (ASCORBIC ACID, COPPER NOS, LUTEIN, SELENIUM NOS, VITAMIN A, V [Concomitant]
  16. OCUVITE (ASCORBIC ACID, COPPER NOS, LUTEIN, SELENIUM NOS, VITAMIN A, V [Concomitant]
  17. TYLENOL (CAPLET) [Concomitant]
  18. NAPROXEN [Concomitant]
  19. BENAZEPRIL HYDROCHLORIDE [Concomitant]
  20. FUROSEMIDE [Concomitant]
  21. FUROSEMIDE [Concomitant]
  22. COREG [Concomitant]
  23. BENAZEPRIL HYDROCHLORIDE [Concomitant]
  24. SPIRONOLACTONE [Concomitant]
  25. SPIRONOLACTONE [Concomitant]

REACTIONS (1)
  - DEATH [None]
